FAERS Safety Report 14477347 (Version 1)
Quarter: 2018Q1

REPORT INFORMATION
  Report Type: Report from Study
  Country: US (occurrence: US)
  Receive Date: 20180201
  Receipt Date: 20180201
  Transmission Date: 20180509
  Serious: No
  Sender: FDA-Public Use
  Company Number: US-EXELIXIS-CABO-17011453

PATIENT
  Sex: Female

DRUGS (11)
  1. MAGNESIUM GLUCONATE [Concomitant]
     Active Substance: MAGNESIUM GLUCONATE
  2. METOPROLOL TARTRATE. [Concomitant]
     Active Substance: METOPROLOL TARTRATE
  3. CABOMETYX [Suspect]
     Active Substance: CABOZANTINIB S-MALATE
     Indication: RENAL CANCER
     Dosage: 60 MG, QD
     Route: 048
     Dates: start: 20170912
  4. ELIQUIS [Concomitant]
     Active Substance: APIXABAN
  5. CETIRIZINE [Concomitant]
     Active Substance: CETIRIZINE HYDROCHLORIDE
  6. DILTIAZEM. [Concomitant]
     Active Substance: DILTIAZEM
  7. FISH OIL [Concomitant]
     Active Substance: FISH OIL
  8. LOSARTAN. [Concomitant]
     Active Substance: LOSARTAN
  9. GLIPIZIDE. [Concomitant]
     Active Substance: GLIPIZIDE
  10. VITAMIN D [Concomitant]
     Active Substance: CHOLECALCIFEROL
  11. LEVOTHYROXINE SODIUM. [Concomitant]
     Active Substance: LEVOTHYROXINE SODIUM

REACTIONS (3)
  - Skin ulcer [Unknown]
  - Ageusia [Unknown]
  - Skin exfoliation [Unknown]
